FAERS Safety Report 9907296 (Version 2)
Quarter: 2014Q1

REPORT INFORMATION
  Report Type: Report from Study
  Country: US (occurrence: US)
  Receive Date: 20140218
  Receipt Date: 20140327
  Transmission Date: 20141002
  Serious: No
  Sender: FDA-Public Use
  Company Number: US-FRI-1000054178

PATIENT
  Age: 49 Year
  Sex: Male
  Weight: 111 kg

DRUGS (2)
  1. SEROQUEL [Suspect]
     Indication: PSYCHOTIC DISORDER
     Dosage: 200 MG
     Route: 048
     Dates: start: 20131018, end: 20131019
  2. ASENAPINE [Suspect]
     Indication: BIPOLAR DISORDER
     Dosage: 10 MG
     Route: 048

REACTIONS (3)
  - Glycosylated haemoglobin increased [Unknown]
  - Glucose urine [Unknown]
  - Blood insulin increased [Unknown]
